FAERS Safety Report 5346698-5 (Version None)
Quarter: 2007Q2

REPORT INFORMATION
  Report Type: 
  Country: None (occurrence: None)
  Receive Date: 20070605
  Receipt Date: 20070525
  Transmission Date: 20071010
  Serious: Yes (Other)
  Sender: FDA-Public Use
  Company Number: US-PFIZER INC-2007042819

PATIENT
  Sex: Male
  Weight: 109.09 kg

DRUGS (7)
  1. DILANTIN [Suspect]
     Indication: CONVULSION
     Dates: start: 19970901, end: 20000101
  2. NEURONTIN [Suspect]
     Indication: DEPRESSION
  3. NEURONTIN [Suspect]
     Indication: CONVULSION
  4. ATENOLOL [Concomitant]
  5. ZYRTEC [Concomitant]
  6. PROTONIX [Concomitant]
  7. ZETIA [Concomitant]

REACTIONS (6)
  - CONVULSION [None]
  - EMOTIONAL DISORDER [None]
  - FATIGUE [None]
  - LETHARGY [None]
  - SEDATION [None]
  - SOMNOLENCE [None]
